FAERS Safety Report 15109428 (Version 1)
Quarter: 2018Q3

REPORT INFORMATION
  Report Type: Spontaneous
  Country: US (occurrence: US)
  Receive Date: 20180705
  Receipt Date: 20180705
  Transmission Date: 20181010
  Serious: No
  Sender: FDA-Public Use
  Company Number: US-PFIZER INC-2017532246

PATIENT
  Age: 68 Year
  Sex: Female
  Weight: 70.3 kg

DRUGS (2)
  1. DOCETAXEL. [Suspect]
     Active Substance: DOCETAXEL
     Indication: BREAST CANCER
     Dosage: 132 MG, EVERY 3 WEEKS
     Dates: start: 20071105
  2. DOCETAXEL. [Suspect]
     Active Substance: DOCETAXEL
     Dosage: 75 MG, WEEKLY
     Dates: end: 20071203

REACTIONS (1)
  - Alopecia [Not Recovered/Not Resolved]
